FAERS Safety Report 13776156 (Version 1)
Quarter: 2017Q3

REPORT INFORMATION
  Report Type: Spontaneous
  Country: US (occurrence: US)
  Receive Date: 20170720
  Receipt Date: 20170720
  Transmission Date: 20171127
  Serious: No
  Sender: FDA-Public Use
  Company Number: PHEH2017US022273

PATIENT

DRUGS (1)
  1. AFINITOR [Suspect]
     Active Substance: EVEROLIMUS
     Indication: ANGIOLIPOMA
     Route: 048

REACTIONS (4)
  - Hypoaesthesia [Unknown]
  - Stomatitis [Unknown]
  - Dyspnoea [Unknown]
  - Mouth ulceration [Unknown]
